FAERS Safety Report 19078640 (Version 1)
Quarter: 2021Q1

REPORT INFORMATION
  Report Type: Report from Study
  Country: US (occurrence: US)
  Receive Date: 20210331
  Receipt Date: 20210331
  Transmission Date: 20210420
  Serious: Yes (Hospitalization, Other)
  Sender: FDA-Public Use
  Company Number: US-ROCHE-2457221

PATIENT
  Age: 75 Year
  Sex: Male
  Weight: 113 kg

DRUGS (2)
  1. ATEZOLIZUMAB. [Suspect]
     Active Substance: ATEZOLIZUMAB
     Indication: PROSTATE CANCER METASTATIC
     Dosage: MOST RECENT DOSE: 25/SEP/2019?LAST DOSE OF ATEZOLIZUMAB: 04/NOV/2019
     Route: 042
     Dates: start: 20190701
  2. SIPULEUCEL?T [Suspect]
     Active Substance: SIPULEUCEL-T
     Indication: PROSTATE CANCER METASTATIC
     Dosage: MOST RECENT DOSE: 01/JUL/2019
     Route: 042
     Dates: start: 20170603

REACTIONS (14)
  - Fatigue [Recovered/Resolved]
  - Syncope [Recovering/Resolving]
  - Constipation [Recovered/Resolved]
  - Dehydration [Unknown]
  - Systemic inflammatory response syndrome [Recovered/Resolved]
  - Wound infection [Recovered/Resolved]
  - Pyrexia [Unknown]
  - Cholecystitis acute [Recovered/Resolved]
  - Vomiting [Recovered/Resolved]
  - Cholecystitis acute [Unknown]
  - Immune system disorder [Recovered/Resolved]
  - Lactic acidosis [Unknown]
  - Abdominal pain [Unknown]
  - Tachycardia [Unknown]

NARRATIVE: CASE EVENT DATE: 20191009
